FAERS Safety Report 7562425-5 (Version None)
Quarter: 2011Q2

REPORT INFORMATION
  Report Type: 
  Country: None (occurrence: None)
  Receive Date: 20110622
  Receipt Date: 20110617
  Transmission Date: 20111010
  Serious: Yes (Life-Threatening)
  Sender: FDA-Public Use
  Company Number: JP-ASTELLAS-2011US002493

PATIENT
  Sex: Male

DRUGS (16)
  1. AMBISOME [Suspect]
     Indication: SYSTEMIC CANDIDA
     Dosage: 50 MG, BID
     Route: 042
     Dates: start: 20110418, end: 20110422
  2. VANCOMYCIN HCL [Concomitant]
     Dosage: 0.5 G, UID/QD
     Route: 042
     Dates: start: 20110506, end: 20110506
  3. PRATIBIT [Concomitant]
     Indication: PRODUCT USED FOR UNKNOWN INDICATION
     Dosage: 1 DF, UID/QD
     Route: 048
  4. EURODIN [Concomitant]
     Indication: PRODUCT USED FOR UNKNOWN INDICATION
     Dosage: 2 DF, UID/QD
     Route: 048
  5. VANCOMYCIN HCL [Concomitant]
     Indication: DEVICE RELATED INFECTION
     Dosage: 1 G, UID/QD
     Route: 042
     Dates: start: 20110404, end: 20110411
  6. OPAPROSMON [Concomitant]
     Indication: PRODUCT USED FOR UNKNOWN INDICATION
     Dosage: 3 DF, TID
     Route: 048
  7. TAIPROTON [Concomitant]
     Indication: PRODUCT USED FOR UNKNOWN INDICATION
     Dosage: 1 DF, UID/QD
     Route: 048
  8. GASMOTIN [Concomitant]
     Indication: PRODUCT USED FOR UNKNOWN INDICATION
     Dosage: 3 DF, TID
     Route: 048
  9. MODACIN [Concomitant]
     Dosage: 1 G, UID/QD
     Route: 042
     Dates: start: 20110422, end: 20110425
  10. MODACIN [Concomitant]
     Dosage: 1 G, UID/QD
     Route: 042
     Dates: start: 20110428, end: 20110428
  11. APATYA [Concomitant]
     Indication: PRODUCT USED FOR UNKNOWN INDICATION
     Dosage: UNK
     Route: 065
  12. VANCOMYCIN HCL [Concomitant]
     Dosage: 0.5 G, UID/QD
     Route: 042
     Dates: start: 20110413, end: 20110420
  13. MODACIN [Concomitant]
     Indication: DEVICE RELATED INFECTION
     Dosage: 1 G, UID/QD
     Route: 042
     Dates: start: 20110418, end: 20110420
  14. PREDNISOLONE [Concomitant]
     Indication: PRODUCT USED FOR UNKNOWN INDICATION
     Dosage: 1 DF, UID/QD
     Route: 048
  15. TIARYL [Concomitant]
     Indication: PRODUCT USED FOR UNKNOWN INDICATION
     Dosage: 1 DF, UID/QD
     Route: 048
  16. YODEL S [Concomitant]
     Indication: PRODUCT USED FOR UNKNOWN INDICATION
     Dosage: 3 DF, TID
     Route: 048

REACTIONS (1)
  - PANCYTOPENIA [None]
